FAERS Safety Report 5747680-6 (Version None)
Quarter: 2008Q2

REPORT INFORMATION
  Report Type: 
  Country: None (occurrence: None)
  Receive Date: 20080523
  Receipt Date: 20080514
  Transmission Date: 20081010
  Serious: Yes (Other)
  Sender: FDA-Public Use
  Company Number: FR-ASTRAZENECA-2008CG00720

PATIENT
  Age: 661 Month
  Sex: Female

DRUGS (4)
  1. ARIMIDEX [Suspect]
     Indication: BREAST CANCER RECURRENT
     Route: 048
     Dates: start: 20060828, end: 20071119
  2. NOLVADEX [Concomitant]
     Indication: BREAST CANCER FEMALE
     Route: 048
     Dates: start: 19990601, end: 20040601
  3. CARDENSIEL [Concomitant]
     Indication: HYPERTENSION
     Route: 048
     Dates: start: 20050501
  4. NASONEX [Concomitant]
     Indication: RHINITIS ALLERGIC

REACTIONS (1)
  - CEREBRAL HAEMANGIOMA [None]
